FAERS Safety Report 19464767 (Version 2)
Quarter: 2021Q2

REPORT INFORMATION
  Report Type: Spontaneous
  Country: US (occurrence: US)
  Receive Date: 20210626
  Receipt Date: 20210626
  Transmission Date: 20210717
  Serious: No
  Sender: FDA-Public Use
  Company Number: US-TAKEDA-2021TUS038045

PATIENT
  Sex: Male

DRUGS (1)
  1. ICLUSIG [Suspect]
     Active Substance: PONATINIB
     Indication: LEUKAEMIA
     Dosage: 45 MILLIGRAM, QD
     Route: 065

REACTIONS (2)
  - Dry skin [Not Recovered/Not Resolved]
  - Rash pruritic [Not Recovered/Not Resolved]
